FAERS Safety Report 22212991 (Version 2)
Quarter: 2023Q2

REPORT INFORMATION
  Report Type: Spontaneous
  Country: US (occurrence: US)
  Receive Date: 20230414
  Receipt Date: 20230525
  Transmission Date: 20230721
  Serious: No
  Sender: FDA-Public Use
  Company Number: US-BIOVITRUM-2023-US-006346

PATIENT
  Sex: Female

DRUGS (2)
  1. DOPTELET [Suspect]
     Active Substance: AVATROMBOPAG MALEATE
     Indication: Immune thrombocytopenia
     Dosage: 20 MG DAILY
     Route: 065
     Dates: start: 2022
  2. PREDNISONE [Concomitant]
     Active Substance: PREDNISONE
     Indication: Product used for unknown indication

REACTIONS (7)
  - Rash [Unknown]
  - Alopecia [Unknown]
  - Urticaria [Unknown]
  - Rash pruritic [Unknown]
  - Dry throat [Unknown]
  - Stress [Unknown]
  - Hypersensitivity [Unknown]
